FAERS Safety Report 8252922-1 (Version None)
Quarter: 2012Q2

REPORT INFORMATION
  Report Type: 
  Country: None (occurrence: None)
  Receive Date: 20120402
  Receipt Date: 20120130
  Transmission Date: 20120825
  Serious: No
  Sender: FDA-Public Use
  Company Number: US-ABBOTT-12P-163-0901246-00

PATIENT
  Sex: Male
  Weight: 65.83 kg

DRUGS (1)
  1. ANDROGEL [Suspect]
     Indication: BLOOD TESTOSTERONE DECREASED
     Dates: start: 20090101

REACTIONS (3)
  - DERMATITIS CONTACT [None]
  - RASH [None]
  - RASH PAPULAR [None]
